FAERS Safety Report 6263675-0 (Version None)
Quarter: 2009Q3

REPORT INFORMATION
  Report Type: 
  Country: None (occurrence: None)
  Receive Date: 20090710
  Receipt Date: 20090702
  Transmission Date: 20100115
  Serious: Yes (Other)
  Sender: FDA-Public Use
  Company Number: JP-ALLERGAN-0909647US

PATIENT
  Age: 10 Year
  Sex: Male

DRUGS (5)
  1. ALESION SYRUP [Suspect]
     Indication: DRUG USE FOR UNKNOWN INDICATION
     Dosage: 1.2 G, QD
     Route: 048
     Dates: start: 20080201, end: 20090508
  2. ONON [Concomitant]
     Dosage: 1.5 UG, UNK
     Route: 048
     Dates: start: 20070630
  3. FLUTIDE [Concomitant]
     Dosage: 200 UG, QD
     Route: 055
     Dates: start: 20070620
  4. ALMETA [Concomitant]
     Route: 062
  5. NEO-MEDROL [Concomitant]
     Route: 062

REACTIONS (1)
  - CONVULSION [None]
